FAERS Safety Report 6936536-9 (Version None)
Quarter: 2010Q3

REPORT INFORMATION
  Report Type: 
  Country: None (occurrence: None)
  Receive Date: 20100823
  Receipt Date: 20100715
  Transmission Date: 20110219
  Serious: No
  Sender: FDA-Public Use
  Company Number: US-PFIZER INC-2010067779

PATIENT
  Sex: Female
  Weight: 54.875 kg

DRUGS (3)
  1. CEFDINIR [Suspect]
     Indication: EAR INFECTION
     Dosage: 300 MG, UNK
     Route: 048
     Dates: start: 20100524, end: 20100525
  2. OMNICEF [Suspect]
     Dosage: UNK
  3. VOLTAREN [Concomitant]
     Indication: MIGRAINE
     Dosage: UNK MG, AS NEEDED

REACTIONS (8)
  - ABDOMINAL PAIN [None]
  - DEHYDRATION [None]
  - DIARRHOEA [None]
  - INCORRECT DOSE ADMINISTERED [None]
  - INFLUENZA LIKE ILLNESS [None]
  - MIGRAINE [None]
  - NAUSEA [None]
  - VOMITING [None]
